FAERS Safety Report 6735548-8 (Version None)
Quarter: 2010Q2

REPORT INFORMATION
  Report Type: 
  Country: None (occurrence: None)
  Receive Date: 20100521
  Receipt Date: 20100513
  Transmission Date: 20101027
  Serious: Yes (Death, Hospitalization)
  Sender: FDA-Public Use
  Company Number: GB-TEVA-234640ISR

PATIENT
  Age: 64 Year
  Sex: Male

DRUGS (2)
  1. OXALIPLATIN [Suspect]
     Indication: RECTAL CANCER
  2. CAPECITABINE [Suspect]
     Indication: RECTAL CANCER

REACTIONS (3)
  - DEATH [None]
  - DIARRHOEA [None]
  - MUCOSAL INFLAMMATION [None]
